FAERS Safety Report 8597364-4 (Version None)
Quarter: 2012Q3

REPORT INFORMATION
  Report Type: 
  Country: None (occurrence: None)
  Receive Date: 20120816
  Receipt Date: 20120810
  Transmission Date: 20120928
  Serious: Yes (Other)
  Sender: FDA-Public Use
  Company Number: US-PFIZER INC-2012195961

PATIENT
  Age: 60 Year
  Sex: Male

DRUGS (2)
  1. VIAGRA [Suspect]
     Dosage: UNK
     Route: 048
  2. VIAGRA [Suspect]
     Dosage: 200 MG, WEEKLY
     Route: 048

REACTIONS (1)
  - OPTIC ISCHAEMIC NEUROPATHY [None]
